FAERS Safety Report 7866719-5 (Version None)
Quarter: 2011Q4

REPORT INFORMATION
  Report Type: 
  Country: None (occurrence: None)
  Receive Date: 20111028
  Receipt Date: 20110805
  Transmission Date: 20120403
  Serious: No
  Sender: FDA-Public Use
  Company Number: US-GLAXOSMITHKLINE-A0939927A

PATIENT
  Age: 57 Year
  Sex: Male

DRUGS (2)
  1. ADVAIR DISKUS 100/50 [Suspect]
     Indication: DYSPNOEA
     Dosage: 1PUFF SINGLE DOSE
     Route: 055
     Dates: start: 20110605, end: 20110605
  2. SYNTHROID [Concomitant]

REACTIONS (3)
  - DISORIENTATION [None]
  - ABDOMINAL DISCOMFORT [None]
  - DIZZINESS [None]
